FAERS Safety Report 7607147-7 (Version None)
Quarter: 2011Q3

REPORT INFORMATION
  Report Type: 
  Country: None (occurrence: None)
  Receive Date: 20110713
  Receipt Date: 20110711
  Transmission Date: 20111222
  Serious: Yes (Hospitalization)
  Sender: FDA-Public Use
  Company Number: JP-PFIZER INC-2011150728

PATIENT
  Age: 85 Year
  Sex: Male

DRUGS (1)
  1. NORPACE [Suspect]
     Dosage: 4200 MG
     Route: 048

REACTIONS (4)
  - ACCIDENTAL OVERDOSE [None]
  - TOXICITY TO VARIOUS AGENTS [None]
  - SHOCK [None]
  - ALTERED STATE OF CONSCIOUSNESS [None]
